FAERS Safety Report 9300898 (Version 1)
Quarter: 2013Q2

REPORT INFORMATION
  Report Type: Spontaneous
  Country: NZ (occurrence: NZ)
  Receive Date: 20130521
  Receipt Date: 20130521
  Transmission Date: 20140414
  Serious: Yes (Other)
  Sender: FDA-Public Use
  Company Number: NZ-ELI_LILLY_AND_COMPANY-NZ201305005146

PATIENT
  Age: 77 Year
  Sex: Male

DRUGS (5)
  1. FLUOXETINE [Suspect]
     Indication: DEPRESSION
     Dosage: 20 MG, QD
     Route: 048
  2. ATORVASTATIN [Concomitant]
     Indication: MYOCARDIAL ISCHAEMIA
     Dosage: 80 MG, QD
     Route: 048
  3. CILAZAPRIL [Concomitant]
     Indication: CARDIAC FAILURE
     Dosage: 0.5 MG, QD
     Route: 048
  4. RANITIDINE [Concomitant]
     Indication: DYSPEPSIA
     Dosage: 600 MG, QD
     Route: 048
  5. FELODIPINE [Concomitant]
     Indication: ESSENTIAL HYPERTENSION
     Dosage: 2.5 MG, QD
     Route: 048

REACTIONS (1)
  - Tongue oedema [Recovered/Resolved]
